FAERS Safety Report 5032883-9 (Version None)
Quarter: 2006Q2

REPORT INFORMATION
  Report Type: 
  Country: None (occurrence: None)
  Receive Date: 20060622
  Receipt Date: 20060609
  Transmission Date: 20061013
  Serious: Yes (Other)
  Sender: FDA-Public Use
  Company Number: PHEH2006US07648

PATIENT
  Sex: Female
  Weight: 54.875 kg

DRUGS (2)
  1. CHEMOTHERAPEUTICS,OTHER [Concomitant]
  2. ZOMETA [Suspect]
     Indication: METASTASES TO BONE
     Dosage: 4 MG, Q 4WK
     Dates: start: 20040101, end: 20051201

REACTIONS (3)
  - INFECTION [None]
  - OSTEONECROSIS [None]
  - PAIN IN JAW [None]
